FAERS Safety Report 21049876 (Version 1)
Quarter: 2022Q3

REPORT INFORMATION
  Report Type: Spontaneous
  Country: ES (occurrence: ES)
  Receive Date: 20220706
  Receipt Date: 20220706
  Transmission Date: 20221027
  Serious: Yes (Death, Other)
  Sender: FDA-Public Use
  Company Number: ES-TAKEDA-2022TUS045199

PATIENT
  Age: 87 Year
  Sex: Female
  Weight: 70 kg

DRUGS (10)
  1. FEBUXOSTAT [Suspect]
     Active Substance: FEBUXOSTAT
     Indication: Hyperuricaemia
     Dosage: 80 MILLIGRAM, QOD
     Route: 065
     Dates: start: 20190207, end: 20200424
  2. FEBUXOSTAT [Suspect]
     Active Substance: FEBUXOSTAT
     Dosage: 80 MILLIGRAM
     Route: 065
     Dates: start: 20200424
  3. FUROSEMIDE [Concomitant]
     Active Substance: FUROSEMIDE
     Indication: Myocardial ischaemia
     Dosage: 40 MILLIGRAM, QD
     Route: 065
  4. BISOPROLOL FUMARATE [Concomitant]
     Active Substance: BISOPROLOL FUMARATE
     Indication: Myocardial ischaemia
     Dosage: 2.5 MILLIGRAM, QD
     Route: 065
     Dates: start: 20190621
  5. SINTROM [Concomitant]
     Active Substance: ACENOCOUMAROL
     Indication: Myocardial ischaemia
     Dosage: 1 MILLIGRAM, BID
     Route: 065
     Dates: start: 20170901
  6. ATORVASTATIN [Concomitant]
     Active Substance: ATORVASTATIN
     Indication: Hypercholesterolaemia
     Dosage: 20 MILLIGRAM, QD
     Route: 065
     Dates: start: 20170315
  7. FERROUS GLYCINE SULFATE [Concomitant]
     Active Substance: FERROUS GLYCINE SULFATE
     Indication: Iron deficiency anaemia
     Dosage: 100 MILLIGRAM, QD
     Route: 065
     Dates: start: 20170901
  8. ERYTHROPOIETIN [Concomitant]
     Active Substance: ERYTHROPOIETIN
     Indication: Monoclonal gammopathy
     Dosage: UNK
     Route: 065
  9. CHLORTHALIDONE [Concomitant]
     Active Substance: CHLORTHALIDONE
     Indication: Chronic kidney disease
     Dosage: 50 MILLIGRAM, 2/WEEK
     Route: 065
     Dates: start: 20190930
  10. NEO-TONFONRIN [Concomitant]
     Indication: Hyperthyroidism
     Dosage: UNK
     Route: 065

REACTIONS (2)
  - Cardiac failure acute [Fatal]
  - Inappropriate schedule of product administration [Recovered/Resolved]

NARRATIVE: CASE EVENT DATE: 20190207
